FAERS Safety Report 17032508 (Version 2)
Quarter: 2019Q4

REPORT INFORMATION
  Report Type: Spontaneous
  Country: AT (occurrence: AT)
  Receive Date: 20191114
  Receipt Date: 20191120
  Transmission Date: 20200122
  Serious: Yes (Hospitalization, Other)
  Sender: FDA-Public Use
  Company Number: AT-ASTRAZENECA-2019SF60736

PATIENT
  Age: 68 Year
  Sex: Female

DRUGS (8)
  1. ZOFRAN [Concomitant]
     Active Substance: ONDANSETRON HYDROCHLORIDE
     Indication: NAUSEA
     Dosage: ON DAY 2 AND 3 AS WELL AS IN TOTAL UP TO 4 TIMES DAILY
  2. DOXAZOSIN [Concomitant]
     Active Substance: DOXAZOSIN MESYLATE
     Dosage: ACCORDING TO AVO
  3. OLEOVIT-D3 [Concomitant]
     Dosage: 30GTT 1TIME/WEEK
  4. LYNPARZA [Suspect]
     Active Substance: OLAPARIB
     Indication: OVARIAN CANCER
     Dosage: 2X 200MG DAILY DUE TO WEIGHT
     Route: 048
     Dates: start: 20190507, end: 20191022
  5. LYNPARZA [Suspect]
     Active Substance: OLAPARIB
     Indication: METASTASES TO LYMPH NODES
     Dosage: 2X 200MG DAILY DUE TO WEIGHT
     Route: 048
     Dates: start: 20190507, end: 20191022
  6. ENALAPRIL/LERCANIDIPIN [Concomitant]
     Dosage: 10MG/10MG ACCORDING TO AVO
  7. LAEVOLAC [Concomitant]
     Active Substance: LACTULOSE
     Indication: CONSTIPATION
  8. NOVALGIN [Concomitant]
     Dosage: UP TO 4 TIMES 20 DROPS DAILY ON DEMAND

REACTIONS (2)
  - Intestinal infarction [Unknown]
  - Abdominal pain [Unknown]

NARRATIVE: CASE EVENT DATE: 20191103
